FAERS Safety Report 5680263-5 (Version None)
Quarter: 2008Q1

REPORT INFORMATION
  Report Type: 
  Country: None (occurrence: None)
  Receive Date: 20080326
  Receipt Date: 20080306
  Transmission Date: 20080703
  Serious: Yes (Other)
  Sender: FDA-Public Use
  Company Number: JP-ROCHE-550133

PATIENT
  Age: 34 Month
  Sex: Male
  Weight: 12 kg

DRUGS (6)
  1. TAMIFLU [Suspect]
     Route: 048
     Dates: start: 20080118, end: 20080118
  2. TAMIFLU [Suspect]
     Route: 048
     Dates: start: 20080119, end: 20080120
  3. KLARICID [Concomitant]
     Route: 048
     Dates: start: 20080118, end: 20080120
  4. MUCODYNE [Concomitant]
     Route: 048
     Dates: start: 20080118, end: 20080120
  5. PERIACTIN [Concomitant]
     Route: 048
     Dates: start: 20080118, end: 20080120
  6. ANHIBA [Concomitant]
     Dosage: FORM: RECTAL SUPPOSITORY.
     Route: 054
     Dates: start: 20080118

REACTIONS (1)
  - ABNORMAL BEHAVIOUR [None]
